FAERS Safety Report 23178878 (Version 1)
Quarter: 2023Q4

REPORT INFORMATION
  Report Type: Spontaneous
  Country: JP (occurrence: JP)
  Receive Date: 20231113
  Receipt Date: 20231113
  Transmission Date: 20240110
  Serious: Yes (Other)
  Sender: FDA-Public Use
  Company Number: JP-PFIZER INC-PV202300184430

PATIENT
  Age: 85 Year
  Sex: Male

DRUGS (3)
  1. TOVIAZ [Suspect]
     Active Substance: FESOTERODINE FUMARATE
     Indication: Nocturia
     Dosage: UNK
     Route: 048
     Dates: start: 20231028
  2. SILODOSIN [Concomitant]
     Active Substance: SILODOSIN
     Indication: Nocturia
     Dosage: 4 MG
  3. VIBEGRON [Concomitant]
     Active Substance: VIBEGRON
     Indication: Nocturia
     Dosage: 50 MG

REACTIONS (7)
  - Urinary tract obstruction [Unknown]
  - Hydronephrosis [Unknown]
  - Urinary retention [Unknown]
  - Urinary incontinence [Unknown]
  - Scrotal swelling [Unknown]
  - Oedema peripheral [Unknown]
  - Off label use [Unknown]

NARRATIVE: CASE EVENT DATE: 20231028
